FAERS Safety Report 10196004 (Version 1)
Quarter: 2014Q2

REPORT INFORMATION
  Report Type: Spontaneous
  Country: US (occurrence: US)
  Receive Date: 20140527
  Receipt Date: 20140527
  Transmission Date: 20141212
  Serious: No
  Sender: FDA-Public Use
  Company Number: US-PFIZER INC-2014141175

PATIENT
  Sex: Male

DRUGS (2)
  1. LYRICA [Suspect]
     Indication: SCIATICA
     Dosage: UNK
     Dates: end: 201405
  2. CYMBALTA [Suspect]
     Indication: SCIATICA
     Dosage: UNK
     Dates: end: 201405

REACTIONS (6)
  - Dizziness [Unknown]
  - Abnormal dreams [Unknown]
  - Somnolence [Unknown]
  - Hyperhidrosis [Unknown]
  - Nausea [Unknown]
  - Bradyphrenia [Unknown]
